FAERS Safety Report 18127751 (Version 2)
Quarter: 2021Q3

REPORT INFORMATION
  Report Type: Spontaneous
  Country: US (occurrence: US)
  Receive Date: 20200810
  Receipt Date: 20210706
  Transmission Date: 20211014
  Serious: Yes (Other)
  Sender: FDA-Public Use
  Company Number: US-GLAXOSMITHKLINE-US2020154555

PATIENT
  Sex: Male

DRUGS (13)
  1. ZANTAC [Suspect]
     Active Substance: RANITIDINE HYDROCHLORIDE
     Indication: DYSPEPSIA
     Dosage: 75 MG, QD
     Route: 065
     Dates: start: 198701, end: 201301
  2. ZANTAC [Suspect]
     Active Substance: RANITIDINE HYDROCHLORIDE
     Indication: DYSPEPSIA
     Dosage: 75 MG, QD
     Route: 065
     Dates: start: 198701, end: 201301
  3. RANITIDINE. [Suspect]
     Active Substance: RANITIDINE
     Indication: DYSPEPSIA
     Dosage: 75 MG, QD
     Route: 065
     Dates: start: 199701, end: 201301
  4. RANITIDINE. [Suspect]
     Active Substance: RANITIDINE
     Indication: ULCER
  5. ZANTAC [Suspect]
     Active Substance: RANITIDINE HYDROCHLORIDE
     Indication: DYSPEPSIA
     Dosage: 75 MG, QD
     Route: 065
     Dates: start: 198701, end: 201301
  6. ZANTAC [Suspect]
     Active Substance: RANITIDINE HYDROCHLORIDE
     Indication: ULCER
  7. ZANTAC [Suspect]
     Active Substance: RANITIDINE HYDROCHLORIDE
     Route: 065
     Dates: start: 19980615, end: 20150615
  8. ZANTAC [Suspect]
     Active Substance: RANITIDINE HYDROCHLORIDE
     Indication: ULCER
  9. RANITIDINE CAPSULE [Suspect]
     Active Substance: RANITIDINE
     Indication: DYSPEPSIA
     Dosage: 75 MG, QD
     Route: 065
     Dates: start: 198701, end: 201301
  10. RANITIDINE. [Suspect]
     Active Substance: RANITIDINE
     Indication: DYSPEPSIA
     Dosage: 75 MG, QD
     Route: 065
     Dates: start: 199701, end: 201301
  11. RANITIDINE. [Suspect]
     Active Substance: RANITIDINE
     Indication: ULCER
  12. ZANTAC [Suspect]
     Active Substance: RANITIDINE HYDROCHLORIDE
     Indication: ULCER
  13. RANITIDINE CAPSULE [Suspect]
     Active Substance: RANITIDINE
     Indication: ULCER

REACTIONS (2)
  - Renal cancer [Unknown]
  - Haematological malignancy [Unknown]
